FAERS Safety Report 21472762 (Version 1)
Quarter: 2022Q4

REPORT INFORMATION
  Report Type: Spontaneous
  Country: US (occurrence: None)
  Receive Date: 20221018
  Receipt Date: 20221018
  Transmission Date: 20230113
  Serious: No
  Sender: FDA-Public Use
  Company Number: US-ADAMAS Pharma-2022ADA00407

PATIENT
  Age: 71 Year
  Sex: Female
  Weight: 70.295 kg

DRUGS (8)
  1. GOCOVRI [Suspect]
     Active Substance: AMANTADINE
     Indication: Tremor
     Dosage: 137 MG, 1X/DAY, AT BEDTIME
     Route: 048
     Dates: start: 20220119, end: 20220201
  2. GOCOVRI [Suspect]
     Active Substance: AMANTADINE
     Indication: Dyskinesia
  3. CARBIDOPA\LEVODOPA [Concomitant]
     Active Substance: CARBIDOPA\LEVODOPA
  4. KLONOPIN [Concomitant]
     Active Substance: CLONAZEPAM
  5. KLONOPIN [Concomitant]
     Active Substance: CLONAZEPAM
  6. VITAMIN D [Concomitant]
     Active Substance: VITAMIN D NOS
  7. VITAMIN B [Concomitant]
     Active Substance: VITAMIN B
  8. SERTRALINE [Concomitant]
     Active Substance: SERTRALINE HYDROCHLORIDE

REACTIONS (1)
  - Drug ineffective for unapproved indication [Recovered/Resolved]

NARRATIVE: CASE EVENT DATE: 20220119
